FAERS Safety Report 4907316-0 (Version None)
Quarter: 2006Q1

REPORT INFORMATION
  Report Type: 
  Country: None (occurrence: None)
  Receive Date: 20060208
  Receipt Date: 20060208
  Transmission Date: 20060701
  Serious: Yes (Hospitalization)
  Sender: FDA-Public Use
  Company Number: None

PATIENT
  Age: 61 Year
  Sex: Male

DRUGS (6)
  1. FOSINOPRIL SODIUM [Suspect]
     Indication: HYPERTENSION
     Dosage: 40MG QD
     Dates: start: 20050504
  2. SPIRONOLACTONE [Suspect]
     Indication: HYPERTENSION
     Dosage: 50 MG BID
     Dates: start: 20050505
  3. POTASSIUM CHLORIDE [Suspect]
     Indication: MINERAL SUPPLEMENTATION
     Dosage: 40 MEQ TID
     Dates: start: 20050301
  4. TRAMADOL [Concomitant]
  5. AMIODARONE HCL [Concomitant]
  6. OMEPRAZOLE [Concomitant]

REACTIONS (1)
  - HYPERKALAEMIA [None]
